FAERS Safety Report 5595319-5 (Version None)
Quarter: 2008Q1

REPORT INFORMATION
  Report Type: 
  Country: None (occurrence: None)
  Receive Date: 20080117
  Receipt Date: 20080110
  Transmission Date: 20080703
  Serious: Yes (Death)
  Sender: FDA-Public Use
  Company Number: US-BAXTER-2008BH000385

PATIENT
  Age: 3 Year
  Sex: Female

DRUGS (1)
  1. PROTAMINE SULFATE INJ [Suspect]
     Indication: HEPARIN NEUTRALISATION THERAPY
     Dosage: DOSE UNIT:UNKNOWN
     Route: 065

REACTIONS (1)
  - PULMONARY HYPERTENSION [None]
